FAERS Safety Report 6350050-3 (Version None)
Quarter: 2009Q3

REPORT INFORMATION
  Report Type: 
  Country: None (occurrence: None)
  Receive Date: 20090911
  Receipt Date: 20090622
  Transmission Date: 20100115
  Serious: No
  Sender: FDA-Public Use
  Company Number: US-ABBOTT-06P-163-0352404-00

PATIENT
  Sex: Female
  Weight: 101 kg

DRUGS (6)
  1. HUMIRA [Suspect]
     Indication: RHEUMATOID ARTHRITIS
     Route: 058
     Dates: start: 20061201
  2. HUMIRA [Suspect]
     Dates: start: 20061104, end: 20061201
  3. ITP-GLUTATHION [Concomitant]
     Indication: AUTOIMMUNE DISORDER
     Route: 030
     Dates: start: 20060301
  4. CYCLOBENZAPRINE HCL [Concomitant]
     Indication: MUSCLE SPASMS
     Route: 048
     Dates: start: 20060201
  5. CARISOPRODOL [Concomitant]
     Indication: MUSCLE SPASMS
     Route: 048
     Dates: start: 20020101
  6. OXYCODONE HCL [Concomitant]
     Indication: PAIN
     Route: 048
     Dates: start: 20050101

REACTIONS (1)
  - INCORRECT DOSE ADMINISTERED [None]
